FAERS Safety Report 4420839-6 (Version None)
Quarter: 2004Q3

REPORT INFORMATION
  Report Type: 
  Country: None (occurrence: None)
  Receive Date: 20040809
  Receipt Date: 20040727
  Transmission Date: 20050211
  Serious: Yes (Other)
  Sender: FDA-Public Use
  Company Number: US-JNJFOC-20040402018

PATIENT
  Sex: Male

DRUGS (5)
  1. DURAGESIC [Suspect]
     Route: 062
     Dates: end: 20040405
  2. PERCOCET [Suspect]
     Route: 049
  3. PERCOCET [Suspect]
     Indication: PAIN
     Route: 049
  4. SOMA [Concomitant]
     Route: 049
  5. RESTORIL [Concomitant]
     Indication: INSOMNIA
     Route: 049

REACTIONS (1)
  - LOSS OF CONSCIOUSNESS [None]
